FAERS Safety Report 7399549-1 (Version None)
Quarter: 2011Q2

REPORT INFORMATION
  Report Type: 
  Country: None (occurrence: None)
  Receive Date: 20110407
  Receipt Date: 20101020
  Transmission Date: 20111010
  Serious: Yes (Hospitalization, Other)
  Sender: FDA-Public Use
  Company Number: US-BAYER-201031734NA

PATIENT
  Sex: Female
  Weight: 71.202 kg

DRUGS (11)
  1. ASCORBIC ACID [Concomitant]
  2. CLONAZEPAM [Concomitant]
  3. LEXAPRO [Concomitant]
  4. YASMIN [Suspect]
     Indication: ACNE
     Dosage: UNK UNK, UNK
     Route: 065
     Dates: start: 20020401, end: 20050601
  5. TOPROL-XL [Concomitant]
  6. VITAMIN E [Concomitant]
  7. DIGOXIN [Concomitant]
  8. KLONOPIN [Concomitant]
  9. MULTIVITAMIN PREPARATION + MINERAL SUPPLEMENT [Concomitant]
  10. LORAZEPAM [Concomitant]
  11. ASPIRIN [Concomitant]

REACTIONS (9)
  - PALPITATIONS [None]
  - ATRIAL FIBRILLATION [None]
  - ARRHYTHMIA [None]
  - ATRIOVENTRICULAR BLOCK [None]
  - SICK SINUS SYNDROME [None]
  - PULMONARY EMBOLISM [None]
  - CHEST PAIN [None]
  - MITRAL VALVE PROLAPSE [None]
  - SUPRAVENTRICULAR TACHYCARDIA [None]
